FAERS Safety Report 9434360 (Version 1)
Quarter: 2013Q3

REPORT INFORMATION
  Report Type: Spontaneous
  Country: US (occurrence: None)
  Receive Date: 20130731
  Receipt Date: 20130731
  Transmission Date: 20140515
  Serious: Yes (Other)
  Sender: FDA-Public Use
  Company Number: None

PATIENT
  Age: 77 Year
  Sex: Female

DRUGS (3)
  1. MONTELUKAST [Suspect]
     Indication: MULTIPLE ALLERGIES
     Route: 048
     Dates: start: 20130620, end: 20130620
  2. SIMVASTATIN [Concomitant]
  3. CALCIUM [Concomitant]

REACTIONS (2)
  - Depression [None]
  - Suicidal ideation [None]
